FAERS Safety Report 6665175-2 (Version None)
Quarter: 2010Q2

REPORT INFORMATION
  Report Type: 
  Country: None (occurrence: None)
  Receive Date: 20100402
  Receipt Date: 20100322
  Transmission Date: 20101027
  Serious: Yes (Hospitalization)
  Sender: FDA-Public Use
  Company Number: US-BRISTOL-MYERS SQUIBB COMPANY-15027667

PATIENT
  Age: 63 Year
  Sex: Female

DRUGS (5)
  1. CIMETIDINE [Suspect]
     Indication: PREMEDICATION
     Route: 042
  2. CARBOPLATIN [Suspect]
     Indication: BREAST CANCER
  3. PACLITAXEL [Suspect]
     Indication: BREAST CANCER
  4. DEXAMETHASONE [Suspect]
     Indication: PREMEDICATION
  5. DIPHENHYDRAMINE HYDROCHLORIDE [Suspect]
     Indication: PREMEDICATION

REACTIONS (1)
  - HAEMOLYTIC ANAEMIA [None]
